FAERS Safety Report 12529990 (Version 1)
Quarter: 2016Q3

REPORT INFORMATION
  Report Type: Spontaneous
  Country: US (occurrence: None)
  Receive Date: 20160705
  Receipt Date: 20160705
  Transmission Date: 20161109
  Serious: Yes (Disabling, Other)
  Sender: FDA-Public Use
  Company Number: None

PATIENT
  Age: 39 Year
  Sex: Male
  Weight: 113.4 kg

DRUGS (1)
  1. AMOXICILLIN. [Suspect]
     Active Substance: AMOXICILLIN
     Indication: TOOTH ABSCESS
     Dosage: 30 CAPSULE(S) EVERY 8 HOURS TAKEN BY MOUTH
     Route: 048
     Dates: start: 20160621, end: 20160701

REACTIONS (8)
  - Dysphonia [None]
  - Diarrhoea [None]
  - Dry mouth [None]
  - Chest pain [None]
  - Nausea [None]
  - Paraesthesia oral [None]
  - Hypoaesthesia oral [None]
  - Back pain [None]

NARRATIVE: CASE EVENT DATE: 20160621
